FAERS Safety Report 9823740 (Version 3)
Quarter: 2015Q3

REPORT INFORMATION
  Report Type: Spontaneous
  Country: US (occurrence: US)
  Receive Date: 20140116
  Receipt Date: 20150810
  Transmission Date: 20151125
  Serious: No
  Sender: FDA-Public Use
  Company Number: US-GILEAD-2011-0040633

PATIENT
  Age: 77 Year
  Sex: Female

DRUGS (3)
  1. REVATIO [Concomitant]
     Active Substance: SILDENAFIL CITRATE
  2. LETAIRIS [Suspect]
     Active Substance: AMBRISENTAN
     Indication: PRODUCT USED FOR UNKNOWN INDICATION
     Route: 048
     Dates: start: 20110421
  3. TYVASO [Concomitant]
     Active Substance: TREPROSTINIL

REACTIONS (6)
  - Tracheal pain [Unknown]
  - Throat irritation [Unknown]
  - Hypotension [Unknown]
  - Headache [Unknown]
  - Oropharyngeal pain [Unknown]
  - Dizziness [Unknown]
